FAERS Safety Report 21448516 (Version 1)
Quarter: 2022Q4

REPORT INFORMATION
  Report Type: Other
  Country: None (occurrence: US)
  Receive Date: 20221013
  Receipt Date: 20221013
  Transmission Date: 20230113
  Serious: Yes (Other)
  Sender: FDA-Public Use
  Company Number: US-OrBion Pharmaceuticals Private Limited-2133760

PATIENT
  Age: 12 Year
  Sex: Male

DRUGS (1)
  1. DIVALPROEX SODIUM [Suspect]
     Active Substance: DIVALPROEX SODIUM
     Indication: Lennox-Gastaut syndrome
     Route: 065

REACTIONS (9)
  - Pancytopenia [Recovered/Resolved]
  - Macrocytosis [Recovered/Resolved]
  - Stomatocytes present [Recovered/Resolved]
  - Neutrophil Pelger-Huet anomaly present [Recovered/Resolved]
  - Erythroid dysplasia [Recovered/Resolved]
  - Platelet disorder [Recovered/Resolved]
  - Bone marrow failure [Recovered/Resolved]
  - Toxicity to various agents [Recovered/Resolved]
  - Off label use [Recovered/Resolved]
